FAERS Safety Report 24170327 (Version 1)
Quarter: 2024Q3

REPORT INFORMATION
  Report Type: Spontaneous
  Country: JP (occurrence: JP)
  Receive Date: 20240803
  Receipt Date: 20240803
  Transmission Date: 20241016
  Serious: Yes (Death, Hospitalization, Other)
  Sender: INDICUS
  Company Number: JP-Indicus Pharma-001027

PATIENT
  Age: 45 Year
  Sex: Female
  Weight: 90 kg

DRUGS (1)
  1. METFORMIN [Suspect]
     Active Substance: METFORMIN HYDROCHLORIDE
     Dosage: INGESTED APPROXIMATELY 71 G

REACTIONS (8)
  - Shock [Fatal]
  - Pulseless electrical activity [Fatal]
  - Circulatory collapse [Fatal]
  - Overdose [Fatal]
  - Toxicity to various agents [Fatal]
  - Lactic acidosis [Fatal]
  - Hypoxic-ischaemic encephalopathy [Fatal]
  - Cardiac arrest [Fatal]
